FAERS Safety Report 20820580 (Version 2)
Quarter: 2022Q4

REPORT INFORMATION
  Report Type: Spontaneous
  Country: US (occurrence: US)
  Receive Date: 20220512
  Receipt Date: 20221019
  Transmission Date: 20230112
  Serious: No
  Sender: FDA-Public Use
  Company Number: US-PFIZER INC-202200308098

PATIENT
  Age: 68 Year
  Sex: Female

DRUGS (1)
  1. XELJANZ [Suspect]
     Active Substance: TOFACITINIB CITRATE
     Dosage: 5 MG (60 TAB BOTTLE)

REACTIONS (3)
  - Drug ineffective [Unknown]
  - Illness [Unknown]
  - Condition aggravated [Unknown]
